FAERS Safety Report 6094709-4 (Version None)
Quarter: 2009Q1

REPORT INFORMATION
  Report Type: 
  Country: None (occurrence: None)
  Receive Date: 20090224
  Receipt Date: 20090212
  Transmission Date: 20090719
  Serious: Yes (Life-Threatening, Hospitalization)
  Sender: FDA-Public Use
  Company Number: 200902AGG00848

PATIENT
  Age: 69 Year
  Sex: Female

DRUGS (6)
  1. TIROFIBAN                 (NOT SPECIFIED) [Suspect]
     Indication: ANTIPLATELET THERAPY
     Dosage: (DOSE AND  FREQUENCY NOT REPORTED)
  2. HEPARIN LMW (UNFRACTIONATED HEPARIN) [Suspect]
     Dosage: (DOSE, DURATION AND INDICATION NOT REPORTED)
  3. ASPIRIN [Suspect]
  4. CLOPIDOGREL [Suspect]
  5. NITROGLYCERIN [Concomitant]
  6. METOPROLOL [Concomitant]

REACTIONS (16)
  - ACUTE CORONARY SYNDROME [None]
  - ACUTE MYOCARDIAL INFARCTION [None]
  - BACK PAIN [None]
  - CAROTID ARTERY STENOSIS [None]
  - FLANK PAIN [None]
  - HAEMODIALYSIS [None]
  - HAEMODYNAMIC INSTABILITY [None]
  - HAEMOGLOBIN DECREASED [None]
  - HEART RATE INCREASED [None]
  - HYPERHIDROSIS [None]
  - LUNG INJURY [None]
  - NAUSEA [None]
  - RENAL FAILURE ACUTE [None]
  - RENAL HAEMORRHAGE [None]
  - RETROPERITONEAL HAEMATOMA [None]
  - VOMITING [None]
